FAERS Safety Report 5662212-9 (Version None)
Quarter: 2008Q1

REPORT INFORMATION
  Report Type: 
  Country: None (occurrence: None)
  Receive Date: 20080312
  Receipt Date: 20080303
  Transmission Date: 20080703
  Serious: Yes (Hospitalization)
  Sender: FDA-Public Use
  Company Number: FR-PFIZER INC-2008003622

PATIENT
  Sex: Male
  Weight: 70 kg

DRUGS (6)
  1. ZOXAN LP [Suspect]
     Indication: DYSURIA
     Route: 048
     Dates: start: 20040101, end: 20071215
  2. ZOXAN LP [Suspect]
     Indication: BENIGN PROSTATIC HYPERPLASIA
  3. NOVONORM [Concomitant]
     Indication: DIABETES MELLITUS
     Route: 048
  4. ZOPICLONE [Concomitant]
     Indication: SLEEP DISORDER
     Dosage: TEXT:7.5
     Route: 048
  5. DOMPERIDONE [Concomitant]
     Indication: DYSPEPSIA
     Route: 048
  6. DOMPERIDONE [Concomitant]
     Indication: HIATUS HERNIA

REACTIONS (1)
  - GASTROINTESTINAL OBSTRUCTION [None]
